FAERS Safety Report 12712107 (Version 3)
Quarter: 2016Q3

REPORT INFORMATION
  Report Type: Spontaneous
  Country: JP (occurrence: JP)
  Receive Date: 20160902
  Receipt Date: 20160919
  Transmission Date: 20161109
  Serious: Yes (Hospitalization, Other)
  Sender: FDA-Public Use
  Company Number: JP-PFIZER INC-2016283651

PATIENT
  Age: 49 Year
  Sex: Male

DRUGS (3)
  1. GASLON [Concomitant]
     Active Substance: IRSOGLADINE MALEATE
     Indication: ABDOMINAL PAIN UPPER
     Dosage: 4 MG, DAILY
     Route: 048
     Dates: start: 20160509, end: 20160524
  2. CHAMPIX 1MG [Suspect]
     Active Substance: VARENICLINE TARTRATE
     Indication: SMOKING CESSATION THERAPY
     Dosage: 2 MG, DAILY
     Route: 048
     Dates: start: 20160419, end: 20160525
  3. PROTECADIN OD [Concomitant]
     Active Substance: LAFUTIDINE
     Indication: GASTRITIS
     Dosage: 20 MG, DAILY
     Route: 048
     Dates: start: 20160524, end: 20160524

REACTIONS (5)
  - Vomiting [Unknown]
  - Abdominal pain upper [Recovered/Resolved]
  - Hepatitis fulminant [Recovered/Resolved]
  - Gastric ulcer [Unknown]
  - Gastritis [Recovered/Resolved]

NARRATIVE: CASE EVENT DATE: 20160509
